FAERS Safety Report 6997240-4 (Version None)
Quarter: 2010Q3

REPORT INFORMATION
  Report Type: 
  Country: None (occurrence: None)
  Receive Date: 20100918
  Receipt Date: 20090924
  Transmission Date: 20110219
  Serious: No
  Sender: FDA-Public Use
  Company Number: US-WYE-H11219809

PATIENT
  Sex: Female
  Weight: 97.61 kg

DRUGS (4)
  1. PREMPRO [Suspect]
     Indication: NIGHT SWEATS
     Dosage: UNKNOWN
     Route: 048
     Dates: start: 20090701, end: 20090920
  2. METFORMIN [Concomitant]
  3. ZETIA [Concomitant]
  4. TOPROL-XL [Concomitant]

REACTIONS (3)
  - DEMENTIA [None]
  - DEPRESSION [None]
  - WITHDRAWAL SYNDROME [None]
